FAERS Safety Report 16299477 (Version 1)
Quarter: 2019Q2

REPORT INFORMATION
  Report Type: Spontaneous
  Country: DE (occurrence: DE)
  Receive Date: 20190510
  Receipt Date: 20190510
  Transmission Date: 20190711
  Serious: Yes (Other)
  Sender: FDA-Public Use
  Company Number: DE-SA-2019SA124691

PATIENT
  Sex: Male

DRUGS (1)
  1. OMNIC OCA [Suspect]
     Active Substance: TAMSULOSIN HYDROCHLORIDE
     Indication: PROSTATOMEGALY
     Dosage: 1 DF, QD
     Route: 065
     Dates: start: 201904, end: 201904

REACTIONS (4)
  - Oral mucosal blistering [Unknown]
  - Oropharyngeal blistering [Unknown]
  - Lymphadenopathy [Unknown]
  - Stomatitis [Unknown]

NARRATIVE: CASE EVENT DATE: 201904
